FAERS Safety Report 14476972 (Version 1)
Quarter: 2018Q1

REPORT INFORMATION
  Report Type: Report from Study
  Country: US (occurrence: US)
  Receive Date: 20180201
  Receipt Date: 20180201
  Transmission Date: 20180509
  Serious: No
  Sender: FDA-Public Use
  Company Number: US-EXELIXIS-CABO-17009898

PATIENT
  Sex: Female
  Weight: 111.11 kg

DRUGS (13)
  1. METOPROLOL TARTRATE. [Concomitant]
     Active Substance: METOPROLOL TARTRATE
  2. ALLOPURINOL. [Concomitant]
     Active Substance: ALLOPURINOL
  3. PRILOSEC [Concomitant]
     Active Substance: OMEPRAZOLE MAGNESIUM
  4. SODIUM BICARBONATE. [Concomitant]
     Active Substance: SODIUM BICARBONATE
  5. LANTUS [Concomitant]
     Active Substance: INSULIN GLARGINE
  6. LIDOCAINE PRILOCAINE BIOGARAN [Concomitant]
  7. HUMALOG [Concomitant]
     Active Substance: INSULIN LISPRO
  8. RANITIDINE. [Concomitant]
     Active Substance: RANITIDINE
  9. JANTOVEN [Concomitant]
     Active Substance: WARFARIN SODIUM
  10. CABOMETYX [Suspect]
     Active Substance: CABOZANTINIB S-MALATE
     Indication: RENAL CELL CARCINOMA
     Dosage: 60 MG, QD
     Route: 048
     Dates: start: 20170425
  11. RENVELA [Concomitant]
     Active Substance: SEVELAMER CARBONATE
  12. WARFARIN [Concomitant]
     Active Substance: WARFARIN
  13. LEVOTHYROXINE. [Concomitant]
     Active Substance: LEVOTHYROXINE

REACTIONS (3)
  - Constipation [Unknown]
  - Limb discomfort [Unknown]
  - Stomatitis [Unknown]
